FAERS Safety Report 17599783 (Version 1)
Quarter: 2020Q1

REPORT INFORMATION
  Report Type: Spontaneous
  Country: US (occurrence: US)
  Receive Date: 20200330
  Receipt Date: 20200330
  Transmission Date: 20200409
  Serious: Yes (Hospitalization, Other)
  Sender: FDA-Public Use
  Company Number: NVSC2020US086554

PATIENT
  Age: 22 Year
  Sex: Male

DRUGS (2)
  1. AZITHROMYCIN ANHYDROUS. [Suspect]
     Active Substance: AZITHROMYCIN ANHYDROUS
     Indication: PUPILLARY DISORDER
     Dosage: UNK
     Route: 065
  2. PREDNISONE. [Suspect]
     Active Substance: PREDNISONE
     Indication: PUPILLARY DISORDER
     Dosage: UNK
     Route: 048

REACTIONS (3)
  - Optic disc disorder [Recovered/Resolved]
  - Chorioretinitis [Recovered/Resolved]
  - Product use in unapproved indication [Unknown]
